FAERS Safety Report 6033148-9 (Version None)
Quarter: 2009Q1

REPORT INFORMATION
  Report Type: 
  Country: None (occurrence: None)
  Receive Date: 20090105
  Receipt Date: 20080110
  Transmission Date: 20090719
  Serious: Yes (Hospitalization, Other)
  Sender: FDA-Public Use
  Company Number: US-000046

PATIENT
  Age: 45 Year
  Sex: Male

DRUGS (2)
  1. MULTIHANCE [Suspect]
     Indication: MALIGNANT MELANOMA
     Dosage: 19ML QD INTRAVENOUS (NOT OTHERWISE SPECIFIED)
     Route: 042
     Dates: start: 20080108, end: 20080108
  2. MULTIHANCE [Suspect]
     Indication: NUCLEAR MAGNETIC RESONANCE IMAGING
     Dosage: 19ML QD INTRAVENOUS (NOT OTHERWISE SPECIFIED)
     Route: 042
     Dates: start: 20080108, end: 20080108

REACTIONS (3)
  - BLOOD PRESSURE DECREASED [None]
  - CHEST PAIN [None]
  - LOSS OF CONSCIOUSNESS [None]
